FAERS Safety Report 5657572-9 (Version None)
Quarter: 2008Q1

REPORT INFORMATION
  Report Type: 
  Country: None (occurrence: None)
  Receive Date: 20080310
  Receipt Date: 20080229
  Transmission Date: 20080703
  Serious: Yes (Hospitalization)
  Sender: FDA-Public Use
  Company Number: PHBS2008BB02884

PATIENT
  Age: 70 Year
  Sex: Female

DRUGS (6)
  1. ACLASTA [Suspect]
     Indication: OSTEOPOROSIS
     Dosage: 5 MG ONCE A YEAR
     Route: 042
     Dates: start: 20080130
  2. DIOVAN HCT [Suspect]
     Indication: HYPERTENSION
     Dosage: 160 VALS - 12.5 HCTZ MG/DAY
     Route: 048
     Dates: start: 20040101
  3. VOLTAREN [Suspect]
     Dosage: 150 MG, PRN
  4. HYPERIUM [Concomitant]
     Dosage: 1 MG/DAY
     Route: 048
  5. CRESTOR [Concomitant]
     Dosage: 20 MG/DAY
  6. ASPIRIN [Concomitant]

REACTIONS (1)
  - CEREBROVASCULAR ACCIDENT [None]
